FAERS Safety Report 15432724 (Version 1)
Quarter: 2018Q3

REPORT INFORMATION
  Report Type: Spontaneous
  Country: SG (occurrence: SG)
  Receive Date: 20180927
  Receipt Date: 20180927
  Transmission Date: 20181010
  Serious: Yes (Hospitalization)
  Sender: FDA-Public Use
  Company Number: SG-EDENBRIDGE PHARMACEUTICALS, LLC-SG-2018EDE000271

PATIENT
  Age: 44 Year
  Sex: Female

DRUGS (3)
  1. COLCHICINE. [Concomitant]
     Active Substance: COLCHICINE
     Indication: GOUT
     Dosage: UNK
  2. PREDNISOLONE SODIUM PHOSPHATE. [Suspect]
     Active Substance: PREDNISOLONE SODIUM PHOSPHATE
     Indication: DRUG REACTION WITH EOSINOPHILIA AND SYSTEMIC SYMPTOMS
     Dosage: 60 MG, QD
  3. PREDNISOLONE SODIUM PHOSPHATE. [Suspect]
     Active Substance: PREDNISOLONE SODIUM PHOSPHATE
     Dosage: DOSAGE WAS HALVED

REACTIONS (4)
  - Cytomegalovirus infection [Recovering/Resolving]
  - Cytomegalovirus hepatitis [Recovering/Resolving]
  - Escherichia bacteraemia [Unknown]
  - Ventricular fibrillation [Unknown]
